FAERS Safety Report 6602878-X (Version None)
Quarter: 2010Q1

REPORT INFORMATION
  Report Type: 
  Country: None (occurrence: None)
  Receive Date: 20100226
  Receipt Date: 20100212
  Transmission Date: 20100710
  Serious: Yes (Hospitalization, Other)
  Sender: FDA-Public Use
  Company Number: US-ELI_LILLY_AND_COMPANY-US201002004322

PATIENT
  Age: 65 Year
  Sex: Female

DRUGS (1)
  1. EFFIENT [Suspect]
     Dosage: 5 MG, DAILY (1/D)

REACTIONS (2)
  - CEREBRAL HAEMORRHAGE [None]
  - FALL [None]
